FAERS Safety Report 15964245 (Version 4)
Quarter: 2019Q3

REPORT INFORMATION
  Report Type: Report from Study
  Country: None (occurrence: CO)
  Receive Date: 20190214
  Receipt Date: 20190921
  Transmission Date: 20191004
  Serious: Yes (Hospitalization)
  Sender: FDA-Public Use
  Company Number: CO-ABBVIE-18K-036-2529937-00

PATIENT
  Age: 64 Year
  Sex: Male

DRUGS (3)
  1. HUMIRA [Suspect]
     Active Substance: ADALIMUMAB
     Indication: RHEUMATOID ARTHRITIS
     Route: 058
     Dates: start: 20090903
  2. LOPERAMIDE [Concomitant]
     Active Substance: LOPERAMIDE
     Indication: DYSBIOSIS
     Route: 065
  3. HUMIRA [Suspect]
     Active Substance: ADALIMUMAB
     Indication: RHEUMATOID ARTHRITIS
     Route: 058

REACTIONS (12)
  - Laboratory test abnormal [Unknown]
  - Rheumatoid arthritis [Not Recovered/Not Resolved]
  - Gastrooesophageal reflux disease [Not Recovered/Not Resolved]
  - Apnoea [Unknown]
  - Gastrointestinal procedural complication [Unknown]
  - Arthritis [Unknown]
  - Peritonitis [Unknown]
  - Hiatus hernia [Not Recovered/Not Resolved]
  - Diaphragmatic hernia [Unknown]
  - Pain [Unknown]
  - Drug ineffective [Not Recovered/Not Resolved]
  - Arthralgia [Unknown]

NARRATIVE: CASE EVENT DATE: 2018
